FAERS Safety Report 18996302 (Version 2)
Quarter: 2021Q2

REPORT INFORMATION
  Report Type: Spontaneous
  Country: NL (occurrence: NL)
  Receive Date: 20210311
  Receipt Date: 20210416
  Transmission Date: 20210717
  Serious: Yes (Other)
  Sender: FDA-Public Use
  Company Number: NL-TEVA-2021-NL-1888824

PATIENT
  Age: 61 Year
  Sex: Female
  Weight: 74.4 kg

DRUGS (5)
  1. KISQALI [Concomitant]
     Active Substance: RIBOCICLIB
     Dosage: 400 MILLIGRAM DAILY;
     Route: 048
  2. CALCIUM/VITAMINE D3 [Concomitant]
     Dosage: 500/800IE
     Route: 048
  3. FULVESTRANT TEVA 250 MG, OPLOSSING VOOR INJECTIE IN EEN VOORGEVULDE SP [Suspect]
     Active Substance: FULVESTRANT
     Indication: HORMONE RECEPTOR POSITIVE BREAST CANCER
     Dosage: 42WIJ , PATIENT RECEIVED 2 INJECTIONS AT THE SAME TIME ONCE, 2 INJECTIONS ONCE EVERY 4 WEEKS
     Route: 030
     Dates: start: 20210216, end: 20210316
  4. FLUNITRAZEPAM [Concomitant]
     Active Substance: FLUNITRAZEPAM
     Dosage: 1 MILLIGRAM DAILY; AT NIGHT.
     Route: 048
  5. CANDESARTAN. [Concomitant]
     Active Substance: CANDESARTAN
     Dosage: 8 MILLIGRAM DAILY;
     Route: 048

REACTIONS (8)
  - Product substitution issue [Unknown]
  - Swelling face [Recovered/Resolved]
  - Hypoaesthesia [Recovering/Resolving]
  - Pruritus [Recovered/Resolved]
  - Malaise [Recovered/Resolved]
  - Hot flush [Recovered/Resolved]
  - Weight increased [Recovering/Resolving]
  - Alopecia [Recovered/Resolved]

NARRATIVE: CASE EVENT DATE: 202102
